FAERS Safety Report 8472245-5 (Version None)
Quarter: 2012Q2

REPORT INFORMATION
  Report Type: 
  Country: None (occurrence: None)
  Receive Date: 20120627
  Receipt Date: 20120313
  Transmission Date: 20120825
  Serious: No
  Sender: FDA-Public Use
  Company Number: US-MYLANLABS-2012S1005659

PATIENT
  Age: 85 Year
  Sex: Male

DRUGS (5)
  1. RAPAFLO [Concomitant]
  2. ALBUTEROL [Concomitant]
  3. METHOTREXATE [Suspect]
     Indication: ECZEMA
     Dosage: TAKES SIX 2.5MG TABLETS ONCE A WEEK
     Route: 048
  4. SYMBICORT [Concomitant]
  5. OMEPRAZOLE [Concomitant]

REACTIONS (2)
  - STOMATITIS [None]
  - JOINT SWELLING [None]
